FAERS Safety Report 25343212 (Version 4)
Quarter: 2025Q3

REPORT INFORMATION
  Report Type: Report from Study
  Country: JP (occurrence: JP)
  Receive Date: 20250521
  Receipt Date: 20250912
  Transmission Date: 20251021
  Serious: Yes (Death)
  Sender: SHIONOGI
  Company Number: JP-shionogi-202500005131

PATIENT
  Age: 20 Year
  Sex: Female
  Weight: 41 kg

DRUGS (27)
  1. CEFIDEROCOL [Suspect]
     Active Substance: CEFIDEROCOL
     Indication: Bacteraemia
     Route: 041
     Dates: start: 20250212, end: 20250312
  2. CEFIDEROCOL [Suspect]
     Active Substance: CEFIDEROCOL
     Indication: Septic shock
     Route: 041
     Dates: start: 202503
  3. DORIPENEM MONOHYDRATE [Concomitant]
     Active Substance: DORIPENEM MONOHYDRATE
     Indication: Bacteraemia
     Route: 065
     Dates: start: 20250207, end: 20250212
  4. DORIPENEM MONOHYDRATE [Concomitant]
     Active Substance: DORIPENEM MONOHYDRATE
     Indication: Septic shock
  5. DAPTOMYCIN [Concomitant]
     Active Substance: DAPTOMYCIN
     Indication: Bacteraemia
     Dosage: SINCE MORE THAN 2 WEEKS BEFORE THE START OF FETROJA
     Route: 065
     Dates: end: 20250227
  6. DAPTOMYCIN [Concomitant]
     Active Substance: DAPTOMYCIN
     Indication: Septic shock
  7. METRONIDAZOLE [Concomitant]
     Active Substance: METRONIDAZOLE
     Indication: Bacteraemia
     Route: 065
     Dates: start: 20250203, end: 20250207
  8. METRONIDAZOLE [Concomitant]
     Active Substance: METRONIDAZOLE
     Indication: Septic shock
     Route: 065
     Dates: start: 20250212, end: 20250224
  9. ZERBAXA [Concomitant]
     Active Substance: CEFTOLOZANE SULFATE\TAZOBACTAM SODIUM
     Indication: Bacteraemia
     Route: 065
     Dates: start: 20250203, end: 20250207
  10. ZERBAXA [Concomitant]
     Active Substance: CEFTOLOZANE SULFATE\TAZOBACTAM SODIUM
     Indication: Septic shock
  11. MICAFUNGIN SODIUM [Concomitant]
     Active Substance: MICAFUNGIN SODIUM
     Indication: Bacteraemia
     Dosage: SINCE MORE THAN 2 WEEKS BEFORE THE START OF FETROJA
     Route: 065
     Dates: end: 20250225
  12. MICAFUNGIN SODIUM [Concomitant]
     Active Substance: MICAFUNGIN SODIUM
     Indication: Septic shock
  13. AMBISOME [Concomitant]
     Active Substance: AMPHOTERICIN B
     Indication: Bacteraemia
     Route: 065
     Dates: start: 20250207, end: 20250304
  14. AMBISOME [Concomitant]
     Active Substance: AMPHOTERICIN B
     Indication: Septic shock
  15. CALCIUM GLUCONATE\DEXTROSE\MAGNESIUM SULFATE\POTASSIUM ACETATE\POTASSI [Concomitant]
     Active Substance: CALCIUM GLUCONATE\DEXTROSE\MAGNESIUM SULFATE\POTASSIUM ACETATE\POTASSIUM PHOSPHATE, DIBASIC\ZINC SUL
     Indication: Product used for unknown indication
     Route: 065
  16. AMIZET-B [Concomitant]
     Indication: Product used for unknown indication
     Route: 065
  17. KCL CORRECTIVE [Concomitant]
     Indication: Product used for unknown indication
     Route: 065
  18. SODIUM PHOSPHATE [Concomitant]
     Active Substance: SODIUM PHOSPHATE
     Indication: Product used for unknown indication
     Route: 065
  19. OTSUKA MV [Concomitant]
     Indication: Product used for unknown indication
     Route: 065
  20. ELEJECT [Concomitant]
     Indication: Product used for unknown indication
     Route: 065
  21. HUMULIN R [Concomitant]
     Active Substance: INSULIN HUMAN
     Indication: Product used for unknown indication
     Route: 065
  22. REMIFENTANIL [Concomitant]
     Active Substance: REMIFENTANIL
     Indication: Prophylaxis
     Route: 065
  23. OMEPRAZOLE [Concomitant]
     Active Substance: OMEPRAZOLE
     Indication: Prophylaxis
     Route: 065
     Dates: end: 20250224
  24. THROMBOMODULIN ALFA [Concomitant]
     Active Substance: THROMBOMODULIN ALFA
     Indication: Product used for unknown indication
     Route: 065
     Dates: end: 20250225
  25. FAMOTIDINE [Concomitant]
     Active Substance: FAMOTIDINE
     Indication: Prophylaxis
     Route: 065
     Dates: start: 20250214, end: 20250224
  26. PROSTANDIN [Concomitant]
     Indication: Prophylaxis
     Route: 065
  27. PHENTOLAMINE MESYLATE [Concomitant]
     Active Substance: PHENTOLAMINE MESYLATE
     Indication: Product used for unknown indication
     Route: 065
     Dates: start: 20250212

REACTIONS (1)
  - Death [Fatal]
